FAERS Safety Report 23271212 (Version 1)
Quarter: 2023Q4

REPORT INFORMATION
  Report Type: Spontaneous
  Country: CN (occurrence: CN)
  Receive Date: 20231207
  Receipt Date: 20231207
  Transmission Date: 20240110
  Serious: Yes (Hospitalization, Other)
  Sender: FDA-Public Use
  Company Number: CN-SA-SAC20231206001654

PATIENT
  Age: 31 Year
  Sex: Male
  Weight: 65 kg

DRUGS (12)
  1. ZOLPIDEM TARTRATE [Suspect]
     Active Substance: ZOLPIDEM TARTRATE
     Indication: Depression
     Dosage: 20 DF, 1X
     Route: 048
     Dates: start: 20231111, end: 20231111
  2. ZOLPIDEM TARTRATE [Suspect]
     Active Substance: ZOLPIDEM TARTRATE
     Indication: Suicide attempt
  3. FLUOXETINE HYDROCHLORIDE [Suspect]
     Active Substance: FLUOXETINE HYDROCHLORIDE
     Indication: Depression
     Dosage: 10 DF, 1X
     Route: 048
     Dates: start: 20231111, end: 20231111
  4. FLUOXETINE HYDROCHLORIDE [Suspect]
     Active Substance: FLUOXETINE HYDROCHLORIDE
     Indication: Suicide attempt
  5. QUETIAPINE FUMARATE [Suspect]
     Active Substance: QUETIAPINE FUMARATE
     Indication: Depression
     Dosage: 10 DF, 1X
     Route: 048
     Dates: start: 20231111, end: 20231111
  6. QUETIAPINE FUMARATE [Suspect]
     Active Substance: QUETIAPINE FUMARATE
     Indication: Suicide attempt
  7. LORAZEPAM [Suspect]
     Active Substance: LORAZEPAM
     Indication: Depression
     Dosage: 30 DF, 1X
     Route: 048
     Dates: start: 20231111, end: 20231111
  8. LORAZEPAM [Suspect]
     Active Substance: LORAZEPAM
     Indication: Suicide attempt
  9. ALPRAZOLAM [Suspect]
     Active Substance: ALPRAZOLAM
     Indication: Depression
     Dosage: 30 DF, 1X
     Route: 048
     Dates: start: 20231111, end: 20231111
  10. ALPRAZOLAM [Suspect]
     Active Substance: ALPRAZOLAM
     Indication: Suicide attempt
  11. FLUMAZENIL [Concomitant]
     Active Substance: FLUMAZENIL
     Indication: Detoxification
     Dosage: UNK
     Dates: start: 20231111
  12. NALOXONE [Concomitant]
     Active Substance: NALOXONE
     Indication: Detoxification
     Dosage: UNK
     Dates: start: 20231111

REACTIONS (7)
  - Acute kidney injury [Recovering/Resolving]
  - Rhabdomyolysis [Recovering/Resolving]
  - Liver injury [Recovering/Resolving]
  - Hepatic function abnormal [Recovering/Resolving]
  - Unresponsive to stimuli [Recovering/Resolving]
  - Intentional overdose [Recovering/Resolving]
  - Product use in unapproved indication [Unknown]

NARRATIVE: CASE EVENT DATE: 20231111
